FAERS Safety Report 6116662-7 (Version None)
Quarter: 2009Q1

REPORT INFORMATION
  Report Type: 
  Country: None (occurrence: None)
  Receive Date: 20090314
  Receipt Date: 20081223
  Transmission Date: 20090719
  Serious: No
  Sender: FDA-Public Use
  Company Number: US-ABBOTT-08P-163-0494710-00

PATIENT
  Sex: Male
  Weight: 95.34 kg

DRUGS (2)
  1. HUMIRA [Suspect]
     Indication: PSORIATIC ARTHROPATHY
     Dates: start: 20081216
  2. IBUPROFEN [Concomitant]
     Indication: PAIN
     Dosage: PRN

REACTIONS (2)
  - INJECTION SITE HAEMATOMA [None]
  - INJECTION SITE SWELLING [None]
